FAERS Safety Report 4958681-X (Version None)
Quarter: 2006Q1

REPORT INFORMATION
  Report Type: 
  Country: None (occurrence: None)
  Receive Date: 20060330
  Receipt Date: 20051207
  Transmission Date: 20060701
  Serious: Yes (Hospitalization, Disabling, Other)
  Sender: FDA-Public Use
  Company Number: US-MERCK-0512USA01345

PATIENT
  Age: 49 Year
  Sex: Male
  Weight: 132 kg

DRUGS (6)
  1. VIOXX [Suspect]
     Indication: ARTHRALGIA
     Route: 048
     Dates: start: 20001129, end: 20030601
  2. VIOXX [Suspect]
     Route: 048
     Dates: start: 20020601, end: 20030601
  3. VIOXX [Suspect]
     Route: 048
     Dates: start: 20040120
  4. VIOXX [Suspect]
     Indication: INFLAMMATION
     Route: 048
     Dates: start: 20001129, end: 20030601
  5. VIOXX [Suspect]
     Route: 048
     Dates: start: 20020601, end: 20030601
  6. VIOXX [Suspect]
     Route: 048
     Dates: start: 20040120

REACTIONS (7)
  - ARTHRITIS [None]
  - BACK INJURY [None]
  - DIABETES MELLITUS INADEQUATE CONTROL [None]
  - HERNIA [None]
  - MYOCARDIAL INFARCTION [None]
  - PRESCRIBED OVERDOSE [None]
  - ROTATOR CUFF SYNDROME [None]
